FAERS Safety Report 17515437 (Version 1)
Quarter: 2020Q1

REPORT INFORMATION
  Report Type: Spontaneous
  Country: JP (occurrence: JP)
  Receive Date: 20200309
  Receipt Date: 20200309
  Transmission Date: 20200409
  Serious: Yes (Hospitalization, Other)
  Sender: FDA-Public Use
  Company Number: JP-SAKK-2020SA056596AA

PATIENT
  Age: 75 Year
  Sex: Female

DRUGS (1)
  1. TAXOTERE [Suspect]
     Active Substance: DOCETAXEL
     Indication: INVASIVE DUCTAL BREAST CARCINOMA
     Dosage: UNK
     Route: 041
     Dates: start: 2018

REACTIONS (6)
  - Movement disorder [Recovering/Resolving]
  - Decreased appetite [Recovering/Resolving]
  - Loss of personal independence in daily activities [Recovering/Resolving]
  - Cardiac failure congestive [Recovering/Resolving]
  - Depressed level of consciousness [Recovering/Resolving]
  - Atrial thrombosis [Recovering/Resolving]

NARRATIVE: CASE EVENT DATE: 2018
